FAERS Safety Report 4930581-0 (Version None)
Quarter: 2006Q1

REPORT INFORMATION
  Report Type: 
  Country: None (occurrence: None)
  Receive Date: 20060302
  Receipt Date: 20060224
  Transmission Date: 20060701
  Serious: Yes (Hospitalization, Disabling)
  Sender: FDA-Public Use
  Company Number: US-MERCK-0602USA05767

PATIENT
  Age: 52 Year
  Sex: Female
  Weight: 79 kg

DRUGS (4)
  1. VIOXX [Suspect]
     Indication: ARTHRITIS
     Route: 065
  2. CLONIDINE [Concomitant]
     Route: 065
  3. MOTRIN [Concomitant]
     Route: 065
  4. METHADONE HCL [Concomitant]
     Route: 065

REACTIONS (3)
  - DEPRESSION [None]
  - GASTRIC ULCER [None]
  - MYOCARDIAL INFARCTION [None]
